FAERS Safety Report 5227176-0 (Version None)
Quarter: 2007Q1

REPORT INFORMATION
  Report Type: 
  Country: None (occurrence: None)
  Receive Date: 20070130
  Receipt Date: 20070117
  Transmission Date: 20070707
  Serious: Yes (Hospitalization)
  Sender: FDA-Public Use
  Company Number: ABX02-06-0711

PATIENT
  Age: 61 Year
  Sex: Female
  Weight: 79.4702 kg

DRUGS (6)
  1. ABRAXANE [Suspect]
     Indication: BREAST CANCER
     Dosage: 338 MG/ CYCLE 5, DAY 20/ DATE OF LAST DOSE GIVEN 27NOV06 (175 MG/M2), INTRAVENOUS
     Route: 042
     Dates: start: 20061002
  2. EPIRUBICIN [Suspect]
     Indication: BREAST CANCER
     Dosage: 97 MG/ CYCLE 5, DAY 20/ DATE OF LAST DOSE GIVEN 27NOV06 (50 MG/M2), INTRAVENOUS
     Route: 042
     Dates: start: 20061002
  3. GEMCITABINE [Suspect]
     Indication: BREAST CANCER
     Dosage: 3860 MG/ CYCLE 5, DAY 20/ DATE OF LAST DOSE GIVEN 27NOV06 (2000 MG/M2), INTRAVENOUS
     Route: 042
     Dates: start: 20061002
  4. COUMADIN [Concomitant]
  5. DIOVAN [Concomitant]
  6. TOPROL-XL [Concomitant]

REACTIONS (9)
  - ANOREXIA [None]
  - DEHYDRATION [None]
  - FATIGUE [None]
  - HAEMATOCRIT DECREASED [None]
  - HAEMOGLOBIN DECREASED [None]
  - HYPOKALAEMIA [None]
  - INTERNATIONAL NORMALISED RATIO INCREASED [None]
  - PROTHROMBIN TIME PROLONGED [None]
  - WHITE BLOOD CELL COUNT DECREASED [None]
